FAERS Safety Report 10700790 (Version 1)
Quarter: 2015Q1

REPORT INFORMATION
  Report Type: Spontaneous
  Country: US (occurrence: None)
  Receive Date: 20150108
  Receipt Date: 20150108
  Transmission Date: 20150721
  Serious: No
  Sender: FDA-Public Use
  Company Number: None

PATIENT
  Age: 28 Year
  Sex: Female
  Weight: 58.97 kg

DRUGS (2)
  1. PRE-NATALS [Concomitant]
  2. LIOTHYRONINE SODIUM. [Suspect]
     Active Substance: LIOTHYRONINE SODIUM
     Indication: THYROID HORMONE REPLACEMENT THERAPY
     Dosage: 25 MCG, 1 PILL, 1 DAILY, BY MOUTH
     Route: 048
     Dates: start: 20141216, end: 20141221

REACTIONS (6)
  - Heart rate increased [None]
  - Vomiting [None]
  - Overdose [None]
  - Insomnia [None]
  - Headache [None]
  - Decreased appetite [None]

NARRATIVE: CASE EVENT DATE: 20141222
